FAERS Safety Report 23801621 (Version 2)
Quarter: 2024Q2

REPORT INFORMATION
  Report Type: Spontaneous
  Country: FR (occurrence: FR)
  Receive Date: 20240430
  Receipt Date: 20240508
  Transmission Date: 20240715
  Serious: Yes (Hospitalization)
  Sender: FDA-Public Use
  Company Number: None

PATIENT
  Age: 15 Year
  Sex: Female
  Weight: 43 kg

DRUGS (8)
  1. SEVOFLURANE [Suspect]
     Active Substance: SEVOFLURANE
     Indication: Maintenance of anaesthesia
     Route: 050
     Dates: start: 20240417, end: 20240417
  2. DEXAMETHASONE [Suspect]
     Active Substance: DEXAMETHASONE
     Indication: Prophylaxis of nausea and vomiting
     Dosage: TIME INTERVAL: 1 TOTAL: DEXAMETHASONE VIATRIS 20 MG/5 ML, SOLUTION FOR INJECTION IN AMPOULE
     Route: 042
     Dates: start: 20240417, end: 20240417
  3. ACETAMINOPHEN [Suspect]
     Active Substance: ACETAMINOPHEN
     Indication: Analgesic therapy
     Dosage: TIME INTERVAL: 1 TOTAL: 500MG
     Route: 042
     Dates: start: 20240417, end: 20240417
  4. ALFENTANIL HYDROCHLORIDE [Suspect]
     Active Substance: ALFENTANIL HYDROCHLORIDE
     Indication: Anaesthesia
     Dosage: TIME INTERVAL: 1 TOTAL: 1MG?RAPIFEN 5 MG (0,5 MG/ML), SOLUTION INJECTABLE
     Route: 042
     Dates: start: 20240417, end: 20240417
  5. PROPOFOL LIPURO [Suspect]
     Active Substance: PROPOFOL
     Indication: Anaesthesia
     Dosage: TIME INTERVAL: 1 TOTAL: PROPOFOL LIPURO 1 % (10 MG/ML), A EMULSION INJECTABLE OU POUR PERFUSION
     Route: 042
     Dates: start: 20240417, end: 20240417
  6. KETOPROFEN [Suspect]
     Active Substance: KETOPROFEN
     Indication: Analgesic therapy
     Dosage: TIME INTERVAL: 1 TOTAL: 50MG?KETOPROFENE MEDISOL 100 MG/4 ML, CONCENTRATE FOR SOLUTION FOR INFUSION
     Route: 042
     Dates: start: 20240417, end: 20240417
  7. LIDOCAINE\PRILOCAINE [Suspect]
     Active Substance: LIDOCAINE\PRILOCAINE
     Indication: Local anaesthesia
     Dosage: LIDOCAINE/PRILOCAINE AGUETTANT 5%, CREAM
     Route: 003
     Dates: start: 20240417, end: 20240417
  8. ROPIVACAINE. [Suspect]
     Active Substance: ROPIVACAINE HYDROCHLORIDE
     Indication: Local anaesthesia
     Dosage: TIME INTERVAL: 1 TOTAL: ROPIVACAINE NORIDEM 2 MG/ML, SOLUTION INJECTABLE
     Route: 004
     Dates: start: 20240417, end: 20240417

REACTIONS (1)
  - Angioedema [Recovered/Resolved]

NARRATIVE: CASE EVENT DATE: 20240417
